FAERS Safety Report 8844066 (Version 1)
Quarter: 2012Q4

REPORT INFORMATION
  Report Type: 
  Country: US (occurrence: US)
  Receive Date: 20121017
  Receipt Date: 20121017
  Transmission Date: 20130627
  Serious: No
  Sender: FDA-Public Use
  Company Number: US-009507513-1210USA002829

PATIENT
  Age: 58 Year
  Sex: Male

DRUGS (10)
  1. VICTRELIS [Suspect]
     Indication: HEPATITIS C
     Dosage: UNK
     Dates: start: 20121002
  2. PEGASYS [Suspect]
  3. RIBAPAK [Suspect]
  4. IRON (UNSPECIFIED) [Concomitant]
  5. TRUVADA [Concomitant]
  6. ASPIRIN [Concomitant]
  7. POTASSIUM (UNSPECIFIED) [Concomitant]
  8. JANUVIA [Concomitant]
  9. METOPROLOL [Concomitant]
  10. VITAMINS (UNSPECIFIED) [Concomitant]

REACTIONS (3)
  - Dizziness [Unknown]
  - Fatigue [Unknown]
  - Influenza like illness [Unknown]
